FAERS Safety Report 4597323-2 (Version None)
Quarter: 2005Q1

REPORT INFORMATION
  Report Type: 
  Country: None (occurrence: None)
  Receive Date: 20050225
  Receipt Date: 20050225
  Transmission Date: 20050727
  Serious: Yes (Hospitalization)
  Sender: FDA-Public Use
  Company Number: None

PATIENT
  Age: 9 Year
  Sex: Female
  Weight: 36.5 kg

DRUGS (5)
  1. VINCRISTINE [Suspect]
     Indication: ACUTE LYMPHOCYTIC LEUKAEMIA
     Dosage: 1.95 MG Q WEEK X 3 (042)
     Dates: start: 20050201
  2. VINCRISTINE [Suspect]
     Indication: ACUTE LYMPHOCYTIC LEUKAEMIA
     Dosage: 1.95 MG Q WEEK X 3 (042)
     Dates: start: 20050215
  3. DEXAMETHASONE [Concomitant]
  4. IM PEG-ASP [Concomitant]
  5. METHOTREXATE [Concomitant]

REACTIONS (3)
  - CONSTIPATION [None]
  - CONVULSION [None]
  - HEPATOTOXICITY [None]
